FAERS Safety Report 5264410-5 (Version None)
Quarter: 2007Q1

REPORT INFORMATION
  Report Type: 
  Country: None (occurrence: None)
  Receive Date: 20070309
  Receipt Date: 20070226
  Transmission Date: 20070707
  Serious: Yes (Hospitalization)
  Sender: FDA-Public Use
  Company Number: GXBR2007US00676

PATIENT
  Age: 54 Year
  Sex: Male

DRUGS (2)
  1. ETODOLAC [Suspect]
     Indication: BACK PAIN
     Dosage: 400 MG, BID, ORAL
     Route: 048
     Dates: start: 20041207, end: 20050815
  2. PRINIVIL [Suspect]
     Indication: HYPERTENSION
     Dosage: 20 MG, QD, ORAL
     Route: 048
     Dates: start: 20041209, end: 20050829

REACTIONS (7)
  - ABDOMINAL PAIN [None]
  - DIARRHOEA [None]
  - HYPOTENSION [None]
  - HYPOVOLAEMIA [None]
  - NAUSEA [None]
  - RENAL FAILURE ACUTE [None]
  - TACHYCARDIA [None]
